FAERS Safety Report 16601837 (Version 3)
Quarter: 2019Q3

REPORT INFORMATION
  Report Type: Spontaneous
  Country: JP (occurrence: JP)
  Receive Date: 20190719
  Receipt Date: 20190806
  Transmission Date: 20191004
  Serious: Yes (Death, Life-Threatening, Hospitalization, Other)
  Sender: FDA-Public Use
  Company Number: JP-009507513-1907JPN000326J

PATIENT
  Age: 73 Year
  Sex: Male
  Weight: 62 kg

DRUGS (3)
  1. KEYTRUDA [Suspect]
     Active Substance: PEMBROLIZUMAB
     Indication: TRANSITIONAL CELL CARCINOMA
     Dosage: 200 MILLIGRAM, Q3W
     Route: 041
     Dates: start: 20190610, end: 20190610
  2. ZOPICLONE [Concomitant]
     Active Substance: ZOPICLONE
     Indication: INSOMNIA
     Dosage: 7.5 MILLIGRAM, QD
     Route: 048
     Dates: start: 20190219, end: 20190628
  3. POLAPREZINC OD [Concomitant]
     Indication: GASTRIC ULCER
     Dosage: 75 MILLIGRAM, BID
     Route: 048
     Dates: start: 20190219, end: 20190628

REACTIONS (4)
  - Myasthenia gravis [Fatal]
  - Respiratory failure [Not Recovered/Not Resolved]
  - Hypoxic-ischaemic encephalopathy [Fatal]
  - Interstitial lung disease [Unknown]

NARRATIVE: CASE EVENT DATE: 201906
